FAERS Safety Report 10206816 (Version 1)
Quarter: 2014Q2

REPORT INFORMATION
  Report Type: Spontaneous
  Country: CZ (occurrence: CZ)
  Receive Date: 20140530
  Receipt Date: 20140530
  Transmission Date: 20141212
  Serious: Yes (Death, Life-Threatening, Hospitalization, Disabling)
  Sender: FDA-Public Use
  Company Number: CZ-B.I. PHARMACEUTICALS,INC./RIDGEFIELD-2014-BI-23622CZ

PATIENT
  Sex: Male

DRUGS (12)
  1. ATROVENT [Suspect]
     Indication: CHRONIC OBSTRUCTIVE PULMONARY DISEASE
     Route: 065
  2. SPIRIVA [Suspect]
     Indication: CHRONIC OBSTRUCTIVE PULMONARY DISEASE
     Route: 065
     Dates: start: 2012
  3. SERETIDE [Concomitant]
     Dosage: DOSE PER APPLICATION: 50-500
     Route: 065
     Dates: start: 2012
  4. VENTOLIN [Concomitant]
     Route: 065
  5. AFONILUM [Concomitant]
     Dosage: DOSE PER APPLICATION: 250
     Route: 065
  6. FORMOTEROL [Concomitant]
     Route: 065
  7. FURON [Concomitant]
     Route: 065
  8. VEROSPIRON [Concomitant]
     Route: 065
  9. TRITACE [Concomitant]
     Route: 065
  10. ACIDOSALICYLIC ACID [Concomitant]
     Route: 065
  11. LUSOPRES [Concomitant]
     Route: 065
  12. ATORIS [Concomitant]
     Route: 065

REACTIONS (1)
  - Condition aggravated [Fatal]
